FAERS Safety Report 18842600 (Version 1)
Quarter: 2021Q1

REPORT INFORMATION
  Report Type: Spontaneous
  Country: US (occurrence: US)
  Receive Date: 20210203
  Receipt Date: 20210203
  Transmission Date: 20210419
  Serious: No
  Sender: FDA-Public Use
  Company Number: US-BAUSCH-BL-2021-001123

PATIENT
  Sex: Male

DRUGS (2)
  1. WELLBUTRIN XL [Suspect]
     Active Substance: BUPROPION HYDROCHLORIDE
     Indication: PRODUCT USED FOR UNKNOWN INDICATION
     Route: 048
     Dates: start: 2020, end: 2020
  2. WELLBUTRIN XL [Suspect]
     Active Substance: BUPROPION HYDROCHLORIDE
     Dosage: DOSE INCREASED AND ABOUT 4 WEEKS AGO PRIOR TO DATE OF REPORT DISCONTINUED
     Route: 048
     Dates: start: 2020, end: 202012

REACTIONS (2)
  - Heart rate increased [Unknown]
  - Tremor [Not Recovered/Not Resolved]

NARRATIVE: CASE EVENT DATE: 2020
